FAERS Safety Report 4489630-9 (Version None)
Quarter: 2004Q4

REPORT INFORMATION
  Report Type: 
  Country: None (occurrence: None)
  Receive Date: 20041026
  Receipt Date: 20041012
  Transmission Date: 20050328
  Serious: Yes (Death)
  Sender: FDA-Public Use
  Company Number: 02100-JPN-04-0273

PATIENT
  Age: 53 Year
  Sex: Male

DRUGS (3)
  1. CILOSTAZOL [Suspect]
     Indication: PERIPHERAL VASCULAR DISORDER
     Dosage: 100 MG ORAL
     Route: 048
     Dates: start: 20041001, end: 20041006
  2. METFORMIN [Concomitant]
  3. ACE INHIBITOR [Concomitant]

REACTIONS (1)
  - GASTROINTESTINAL HAEMORRHAGE [None]
